FAERS Safety Report 14030113 (Version 1)
Quarter: 2017Q4

REPORT INFORMATION
  Report Type: Other
  Country: IT (occurrence: IT)
  Receive Date: 20171001
  Receipt Date: 20171001
  Transmission Date: 20180321
  Serious: Yes (Other)
  Sender: FDA-Public Use
  Company Number: IT-DEXPHARM-20171307

PATIENT
  Age: 16 Month
  Sex: Male

DRUGS (1)
  1. CHLORHEXIDINE-ALCOHOL [Suspect]
     Active Substance: ALCOHOL\CHLORHEXIDINE GLUCONATE
     Indication: INFECTION PROPHYLAXIS
     Dosage: 2% CHLORHEXIDINE-ALCOHOL

REACTIONS (3)
  - Burns first degree [Recovered/Resolved]
  - Burns second degree [Recovered/Resolved]
  - Off label use [Unknown]
